FAERS Safety Report 9820395 (Version 1)
Quarter: 2014Q1

REPORT INFORMATION
  Report Type: Spontaneous
  Country: US (occurrence: None)
  Receive Date: 20140114
  Receipt Date: 20140114
  Transmission Date: 20141002
  Serious: Yes (Other)
  Sender: FDA-Public Use
  Company Number: None

PATIENT
  Age: 74 Year
  Sex: Female
  Weight: 69.85 kg

DRUGS (8)
  1. LEVOTHYROXINE [Suspect]
     Indication: THYROID DISORDER
     Dosage: BY MOUTH
     Dates: start: 20131121, end: 20131127
  2. SYNTHROID [Concomitant]
  3. AMIODARONE [Concomitant]
  4. METOPROLOL [Concomitant]
  5. NEYDRALAZINE [Concomitant]
  6. LISINOPRIL [Concomitant]
  7. XARATTO [Concomitant]
  8. VITAMIN D [Concomitant]

REACTIONS (6)
  - Rash [None]
  - Pruritus [None]
  - Rash [None]
  - Insomnia [None]
  - Hypersensitivity [None]
  - Product substitution issue [None]
